FAERS Safety Report 19933958 (Version 2)
Quarter: 2021Q4

REPORT INFORMATION
  Report Type: Report from Study
  Country: MX (occurrence: MX)
  Receive Date: 20211008
  Receipt Date: 20211025
  Transmission Date: 20220303
  Serious: Yes (Hospitalization, Other)
  Sender: FDA-Public Use
  Company Number: NVSC2021MX229248

PATIENT
  Age: 86 Year
  Sex: Female
  Weight: 65 kg

DRUGS (5)
  1. METFORMIN HYDROCHLORIDE\VILDAGLIPTIN [Suspect]
     Active Substance: METFORMIN HYDROCHLORIDE\VILDAGLIPTIN
     Indication: Diabetes mellitus
     Dosage: 1 DF, BID (STARTED 2 YEARS APPROXIMATELY)
     Route: 048
  2. METFORMIN HYDROCHLORIDE\VILDAGLIPTIN [Suspect]
     Active Substance: METFORMIN HYDROCHLORIDE\VILDAGLIPTIN
     Dosage: 1 DF, Q12H ( STARTED 2 YEARS AGO)
     Route: 048
  3. AMLODIPINE [Concomitant]
     Active Substance: AMLODIPINE BESYLATE
     Indication: Hypertension
     Dosage: 1 DF, Q12H (STARTED SEVERAL YEARS AGO)
     Route: 048
  4. HYDROCHLOROTHIAZIDE [Concomitant]
     Active Substance: HYDROCHLOROTHIAZIDE
     Indication: Hypertension
     Dosage: 1 DF, Q24H (STARTED SEVERAL YEARS AGO)
     Route: 048
  5. LANSOPRAZOLE [Concomitant]
     Active Substance: LANSOPRAZOLE
     Indication: Abdominal discomfort
     Dosage: 1 DF, Q24H (STARTED SEVERAL YEARS AGO)
     Route: 048

REACTIONS (4)
  - Cholelithiasis [Recovered/Resolved]
  - Osteoporosis [Not Recovered/Not Resolved]
  - Hip fracture [Recovering/Resolving]
  - Arthralgia [Unknown]

NARRATIVE: CASE EVENT DATE: 20210301
